FAERS Safety Report 8338709-X (Version None)
Quarter: 2012Q2

REPORT INFORMATION
  Report Type: 
  Country: None (occurrence: None)
  Receive Date: 20120504
  Receipt Date: 20120501
  Transmission Date: 20120825
  Serious: Yes (Hospitalization, Other)
  Sender: FDA-Public Use
  Company Number: PHHY2012US037064

PATIENT
  Age: 79 Year
  Sex: Female

DRUGS (6)
  1. METOPROLOL TARTRATE [Suspect]
  2. MIRTAZAPINE [Interacting]
  3. ALCOHOL [Interacting]
  4. LORAZEPAM [Interacting]
     Dosage: 0.5 MG, UNK
  5. GLYBURIDE [Interacting]
  6. SERTRALINE HYDROCHLORIDE [Interacting]
     Dosage: 150 MG, UNK

REACTIONS (12)
  - WEIGHT DECREASED [None]
  - SLEEP DISORDER [None]
  - LETHARGY [None]
  - BLOOD GLUCOSE INCREASED [None]
  - ALCOHOLISM [None]
  - DEPRESSION [None]
  - DECREASED APPETITE [None]
  - DRUG INTERACTION [None]
  - COGNITIVE DISORDER [None]
  - LOSS OF CONSCIOUSNESS [None]
  - INSOMNIA [None]
  - ANXIETY [None]
